FAERS Safety Report 15397977 (Version 1)
Quarter: 2018Q4

REPORT INFORMATION
  Report Type: Spontaneous
  Country: GR (occurrence: GR)
  Receive Date: 20180918
  Receipt Date: 20180918
  Transmission Date: 20190204
  Serious: Yes (Hospitalization)
  Sender: FDA-Public Use
  Company Number: GR-MYLANLABS-2018M1067850

PATIENT
  Age: 72 Year

DRUGS (4)
  1. DICLOFENAC [Concomitant]
     Active Substance: DICLOFENAC
     Indication: PRODUCT USED FOR UNKNOWN INDICATION
     Dosage: UNK
  2. CARVEDILOL MYLAN 6,25 MG [Suspect]
     Active Substance: CARVEDILOL
     Indication: CARDIAC FAILURE
     Dosage: 6.25 MG, BID
  3. IRBESARTAN MYLAN [Interacting]
     Active Substance: IRBESARTAN
     Indication: CARDIAC FAILURE
     Dosage: 300 MG, QD
  4. AMILORIDE W/FUROSEMIDE [Concomitant]
     Active Substance: AMILORIDE\FUROSEMIDE
     Indication: CARDIAC FAILURE
     Dosage: UNK UNK, BID (40 + 5MGX2 / D)

REACTIONS (3)
  - Drug interaction [Unknown]
  - Hyperkalaemia [Unknown]
  - Muscular weakness [Unknown]
